FAERS Safety Report 14001041 (Version 49)
Quarter: 2019Q1

REPORT INFORMATION
  Report Type: Spontaneous
  Country: PT (occurrence: PT)
  Receive Date: 20170922
  Receipt Date: 20190312
  Transmission Date: 20190417
  Serious: Yes (Life-Threatening, Hospitalization, Other)
  Sender: FDA-Public Use
  Company Number: PT-009507513-1709PRT010078

PATIENT
  Age: 23 Year
  Sex: Female
  Weight: 102 kg

DRUGS (42)
  1. DEXAMETHASONE SODIUM PHOSPHATE. [Suspect]
     Active Substance: DEXAMETHASONE SODIUM PHOSPHATE
     Indication: PRODUCT USED FOR UNKNOWN INDICATION
     Dosage: UNK
  2. CLARITINE [Suspect]
     Active Substance: LORATADINE
     Indication: ASTHMA
     Dosage: UNK
     Route: 048
  3. CLARITINE [Suspect]
     Active Substance: LORATADINE
     Indication: URTICARIA CHRONIC
  4. CLARITINE [Suspect]
     Active Substance: LORATADINE
     Indication: PRODUCT USED FOR UNKNOWN INDICATION
  5. ZYRTEC [Suspect]
     Active Substance: CETIRIZINE HYDROCHLORIDE
     Indication: ASTHMA
     Dosage: 150 MG, UNK
     Route: 065
  6. OMALIZUMAB. [Suspect]
     Active Substance: OMALIZUMAB
     Indication: ANGIOEDEMA
     Dosage: 150 MG, UNK
     Route: 065
  7. MONTELUKAST SODIUM. [Suspect]
     Active Substance: MONTELUKAST SODIUM
     Indication: ASTHMA
  8. DEFLAZACORT [Suspect]
     Active Substance: DEFLAZACORT
     Indication: PRODUCT USED FOR UNKNOWN INDICATION
  9. ACETAMINOPHEN. [Suspect]
     Active Substance: ACETAMINOPHEN
     Indication: URTICARIA CHRONIC
  10. ACETAMINOPHEN. [Suspect]
     Active Substance: ACETAMINOPHEN
     Indication: PRODUCT USED FOR UNKNOWN INDICATION
  11. EBASTINE [Suspect]
     Active Substance: EBASTINE
     Indication: PRODUCT USED FOR UNKNOWN INDICATION
     Dosage: UNK
     Route: 065
  12. ZYRTEC [Suspect]
     Active Substance: CETIRIZINE HYDROCHLORIDE
     Indication: URTICARIA CHRONIC
     Dosage: UNK
     Route: 065
  13. MONTELUKAST SODIUM. [Suspect]
     Active Substance: MONTELUKAST SODIUM
     Indication: URTICARIA CHRONIC
     Dosage: UNK
     Route: 048
  14. HYDROCORTISONE. [Suspect]
     Active Substance: HYDROCORTISONE
     Indication: ASTHMA
     Dosage: UNK
     Route: 062
  15. DEFLAZACORT [Suspect]
     Active Substance: DEFLAZACORT
     Indication: URTICARIA CHRONIC
     Dosage: UNK
     Route: 048
  16. ACETAMINOPHEN. [Suspect]
     Active Substance: ACETAMINOPHEN
     Indication: ASTHMA
     Dosage: UNK
  17. IBUPROFEN. [Suspect]
     Active Substance: IBUPROFEN
     Indication: URTICARIA CHRONIC
     Dosage: UNK
     Route: 065
  18. CLEMASTINE FUMARATE. [Suspect]
     Active Substance: CLEMASTINE FUMARATE
     Indication: URTICARIA CHRONIC
     Dosage: UNK
     Route: 065
  19. OMALIZUMAB. [Suspect]
     Active Substance: OMALIZUMAB
     Indication: ASTHMA
     Dosage: 300 MG, UNK
  20. OMALIZUMAB. [Suspect]
     Active Substance: OMALIZUMAB
     Indication: URTICARIA CHRONIC
  21. DESLORATADINE. [Suspect]
     Active Substance: DESLORATADINE
     Indication: DRUG PROVOCATION TEST
  22. MONTELUKAST SODIUM. [Suspect]
     Active Substance: MONTELUKAST SODIUM
     Indication: PRODUCT USED FOR UNKNOWN INDICATION
  23. MONTELUKAST SODIUM. [Suspect]
     Active Substance: MONTELUKAST SODIUM
     Indication: DRUG PROVOCATION TEST
  24. METHYLPREDNISOLONE. [Suspect]
     Active Substance: METHYLPREDNISOLONE
     Indication: URTICARIA CHRONIC
     Dosage: UNK
     Route: 062
  25. IBUPROFEN. [Suspect]
     Active Substance: IBUPROFEN
     Indication: PRODUCT USED FOR UNKNOWN INDICATION
  26. EBASTINE [Suspect]
     Active Substance: EBASTINE
     Indication: ASTHMA
     Dosage: UNK
     Route: 065
  27. HYDROXYZINE HYDROCHLORIDE. [Suspect]
     Active Substance: HYDROXYZINE HYDROCHLORIDE
     Indication: URTICARIA CHRONIC
     Dosage: UNK
     Route: 065
  28. DIMETHINDENE MALEATE [Suspect]
     Active Substance: DIMETHINDENE MALEATE
     Indication: PRODUCT USED FOR UNKNOWN INDICATION
     Dosage: UNK
     Route: 065
  29. OMALIZUMAB. [Suspect]
     Active Substance: OMALIZUMAB
     Indication: PRODUCT USED FOR UNKNOWN INDICATION
     Dosage: 300 MG, UNK
     Route: 065
  30. HYDROCORTISONE. [Suspect]
     Active Substance: HYDROCORTISONE
     Indication: URTICARIA CHRONIC
     Dosage: UNK
     Route: 048
  31. FLURBIPROFEN. [Suspect]
     Active Substance: FLURBIPROFEN
     Indication: URTICARIA CHRONIC
     Dosage: UNK
     Route: 065
  32. CLEMASTINE FUMARATE. [Suspect]
     Active Substance: CLEMASTINE FUMARATE
     Indication: PRODUCT USED FOR UNKNOWN INDICATION
     Dosage: UNK
     Route: 065
  33. DESLORATADINE. [Suspect]
     Active Substance: DESLORATADINE
     Indication: ASTHMA
  34. METHYLPREDNISOLONE. [Suspect]
     Active Substance: METHYLPREDNISOLONE
     Indication: ASTHMA
  35. DEFLAZACORT [Suspect]
     Active Substance: DEFLAZACORT
     Indication: ASTHMA
     Dosage: UNK
     Route: 048
  36. IBUPROFEN. [Suspect]
     Active Substance: IBUPROFEN
     Indication: ASTHMA
     Dosage: UNK
     Route: 065
  37. FLURBIPROFEN. [Suspect]
     Active Substance: FLURBIPROFEN
     Indication: ASTHMA
     Dosage: UNK
     Route: 065
  38. CLEMASTINE FUMARATE. [Suspect]
     Active Substance: CLEMASTINE FUMARATE
     Indication: ASTHMA
  39. DEXAMETHASONE SODIUM PHOSPHATE. [Suspect]
     Active Substance: DEXAMETHASONE SODIUM PHOSPHATE
     Indication: URTICARIA CHRONIC
  40. DESLORATADINE. [Suspect]
     Active Substance: DESLORATADINE
     Indication: URTICARIA CHRONIC
     Dosage: UNK
     Route: 048
  41. HYDROCORTISONE. [Suspect]
     Active Substance: HYDROCORTISONE
     Indication: PRODUCT USED FOR UNKNOWN INDICATION
  42. EBASTINE [Suspect]
     Active Substance: EBASTINE
     Indication: URTICARIA CHRONIC

REACTIONS (9)
  - Urticaria chronic [Recovering/Resolving]
  - Syncope [Unknown]
  - Angioedema [Recovered/Resolved]
  - Urticaria [Recovering/Resolving]
  - Exposure during pregnancy [Unknown]
  - Product use in unapproved indication [Unknown]
  - Allergy test positive [Recovering/Resolving]
  - Drug reaction with eosinophilia and systemic symptoms [Recovered/Resolved]
  - Drug hypersensitivity [Recovered/Resolved]
